FAERS Safety Report 21243079 (Version 1)
Quarter: 2022Q3

REPORT INFORMATION
  Report Type: Spontaneous
  Country: US (occurrence: US)
  Receive Date: 20220823
  Receipt Date: 20220823
  Transmission Date: 20221027
  Serious: Yes (Other)
  Sender: FDA-Public Use
  Company Number: US-GLAXOSMITHKLINE-US2022119422

PATIENT

DRUGS (1)
  1. BENLYSTA [Suspect]
     Active Substance: BELIMUMAB
     Indication: Product used for unknown indication
     Dosage: UNK
     Route: 042

REACTIONS (6)
  - Systemic lupus erythematosus [Unknown]
  - Arthralgia [Unknown]
  - Musculoskeletal stiffness [Unknown]
  - Headache [Unknown]
  - Rash [Unknown]
  - Pulmonary mass [Unknown]
